FAERS Safety Report 4700033-1 (Version None)
Quarter: 2005Q2

REPORT INFORMATION
  Report Type: 
  Country: None (occurrence: None)
  Receive Date: 20050623
  Receipt Date: 20041229
  Transmission Date: 20051028
  Serious: Yes (Hospitalization)
  Sender: FDA-Public Use
  Company Number: US-JNJFOC-20041005041

PATIENT
  Age: 46 Year
  Sex: Female
  Weight: 68.9467 kg

DRUGS (3)
  1. HALDOL [Suspect]
     Indication: DEPRESSION
     Dosage: 5 MG, 3 IN 1 DAY, ORAL; (100 - 150 MG)
     Route: 048
     Dates: start: 20041015, end: 20041015
  2. TRILEPTAL [Concomitant]
  3. VALPROIC ACID [Concomitant]

REACTIONS (3)
  - DEPRESSED LEVEL OF CONSCIOUSNESS [None]
  - OVERDOSE [None]
  - ROAD TRAFFIC ACCIDENT [None]
